FAERS Safety Report 5765216-0 (Version None)
Quarter: 2008Q2

REPORT INFORMATION
  Report Type: 
  Country: None (occurrence: None)
  Receive Date: 20080610
  Receipt Date: 20080610
  Transmission Date: 20081010
  Serious: No
  Sender: FDA-Public Use
  Company Number: None

PATIENT
  Sex: Female
  Weight: 63.9572 kg

DRUGS (2)
  1. PREVACID [Suspect]
     Indication: GASTROOESOPHAGEAL REFLUX DISEASE
     Dosage: 30MG 1 X DAILY PO
     Route: 048
  2. PREVACID [Suspect]
     Indication: VOMITING
     Dosage: 30MG 1 X DAILY PO
     Route: 048

REACTIONS (3)
  - CHROMATURIA [None]
  - OCULAR ICTERUS [None]
  - YELLOW SKIN [None]
